FAERS Safety Report 4432855-9 (Version None)
Quarter: 2004Q3

REPORT INFORMATION
  Report Type: 
  Country: None (occurrence: None)
  Receive Date: 20040823
  Receipt Date: 20040811
  Transmission Date: 20050211
  Serious: Yes (Death, Hospitalization, Other)
  Sender: FDA-Public Use
  Company Number: 2004-03-1633

PATIENT
  Age: 57 Year
  Sex: Male

DRUGS (13)
  1. INTRON A [Suspect]
     Indication: METASTATIC RENAL CELL CARCINOMA
     Dosage: SEE IMAGE
     Route: 058
     Dates: start: 20031215, end: 20031201
  2. INTRON A [Suspect]
     Indication: METASTATIC RENAL CELL CARCINOMA
     Dosage: SEE IMAGE
     Route: 058
     Dates: start: 20031201, end: 20040206
  3. INTRON A [Suspect]
     Indication: METASTATIC RENAL CELL CARCINOMA
     Dosage: SEE IMAGE
     Route: 058
     Dates: start: 20040310, end: 20040318
  4. WARFARIN [Suspect]
     Indication: DEEP VEIN THROMBOSIS
     Dosage: 1-10 MG
     Dates: start: 20040401, end: 20040403
  5. LACTULOSE [Concomitant]
  6. AMOXICILLIN [Concomitant]
  7. LORAZEPAM [Concomitant]
  8. SALBUTAMOL (ALBUTEROL) [Concomitant]
  9. CYCLIZINE [Concomitant]
  10. ONDANSETRON [Concomitant]
  11. ACETAMINOPHEN [Concomitant]
  12. ORAMORPH SR [Concomitant]
  13. FENTANYL [Concomitant]

REACTIONS (19)
  - ACTIVATED PARTIAL THROMBOPLASTIN TIME PROLONGED [None]
  - ALANINE AMINOTRANSFERASE INCREASED [None]
  - CONDITION AGGRAVATED [None]
  - DEEP VEIN THROMBOSIS [None]
  - DILATATION VENTRICULAR [None]
  - INTERNATIONAL NORMALISED RATIO INCREASED [None]
  - INTRACARDIAC THROMBUS [None]
  - LIVER FUNCTION TEST ABNORMAL [None]
  - LOWER RESPIRATORY TRACT INFECTION [None]
  - MALIGNANT NEOPLASM PROGRESSION [None]
  - METASTASES TO HEART [None]
  - METASTASES TO LUNG [None]
  - METASTATIC NEOPLASM [None]
  - NAUSEA [None]
  - PERIPHERAL ISCHAEMIA [None]
  - PROTHROMBIN TIME PROLONGED [None]
  - RENAL IMPAIRMENT [None]
  - RIGHT VENTRICULAR FAILURE [None]
  - VENTRICULAR DYSFUNCTION [None]
